FAERS Safety Report 8250700-0 (Version None)
Quarter: 2012Q2

REPORT INFORMATION
  Report Type: 
  Country: None (occurrence: None)
  Receive Date: 20120402
  Receipt Date: 20120326
  Transmission Date: 20120825
  Serious: Yes (Other)
  Sender: FDA-Public Use
  Company Number: US-PFIZER INC-2012068734

PATIENT
  Sex: Male
  Weight: 110 kg

DRUGS (5)
  1. NEURONTIN [Suspect]
     Indication: SPINAL CORD DISORDER
     Dosage: UNK
     Dates: start: 20080801
  2. HYDROCODONE [Suspect]
     Indication: PAIN
     Dosage: 7.5 MG SIX TIMES A DAY
  3. NEURONTIN [Suspect]
     Dosage: 600 MG, 3X/DAY
     Dates: start: 20080101
  4. CHANTIX [Suspect]
     Indication: SMOKING CESSATION THERAPY
     Dosage: UNK
     Dates: start: 20110101, end: 20110101
  5. ASPIRIN [Concomitant]
     Indication: CHEST PAIN
     Dosage: 325 MG, DAILY

REACTIONS (4)
  - IRRITABILITY [None]
  - PNEUMONIA [None]
  - DRUG ADMINISTRATION ERROR [None]
  - ASTHENIA [None]
